FAERS Safety Report 5564414-9 (Version None)
Quarter: 2007Q4

REPORT INFORMATION
  Report Type: 
  Country: None (occurrence: None)
  Receive Date: 20071218
  Receipt Date: 20071211
  Transmission Date: 20080405
  Serious: Yes (Other)
  Sender: FDA-Public Use
  Company Number: US-JNJFOC-20071203382

PATIENT
  Age: 82 Year
  Sex: Male

DRUGS (1)
  1. LEVAQUIN [Suspect]
     Indication: URINARY TRACT INFECTION
     Route: 065

REACTIONS (2)
  - PAIN IN EXTREMITY [None]
  - TENDON RUPTURE [None]
